FAERS Safety Report 7612243-4 (Version None)
Quarter: 2011Q3

REPORT INFORMATION
  Report Type: 
  Country: None (occurrence: None)
  Receive Date: 20110715
  Receipt Date: 20110708
  Transmission Date: 20111222
  Serious: Yes (Hospitalization)
  Sender: FDA-Public Use
  Company Number: PHHY2011CA60957

PATIENT
  Sex: Male

DRUGS (1)
  1. TOBI [Suspect]
     Dosage: UNK UKN, UNK

REACTIONS (1)
  - LUNG DISORDER [None]
